FAERS Safety Report 17855417 (Version 2)
Quarter: 2020Q3

REPORT INFORMATION
  Report Type: Report from Study
  Country: JP (occurrence: JP)
  Receive Date: 20200603
  Receipt Date: 20200806
  Transmission Date: 20201103
  Serious: Yes (Hospitalization)
  Sender: FDA-Public Use
  Company Number: JP-ASTRAZENECA-2020SE34155

PATIENT
  Age: 27836 Day
  Sex: Male
  Weight: 67 kg

DRUGS (7)
  1. TAGRISSO [Suspect]
     Active Substance: OSIMERTINIB
     Indication: NON-SMALL CELL LUNG CANCER
     Route: 048
     Dates: start: 20190826, end: 20190907
  2. NERIPROCT OINTMENT [Concomitant]
     Dosage: DOSE UNKNOWN, ONCE TO A FEW TIMES DAILY
     Route: 062
     Dates: start: 20190901
  3. LOCOID [Concomitant]
     Active Substance: HYDROCORTISONE BUTYRATE
     Indication: ECZEMA
     Dosage: DOSE UNKNOWN TWO TIMES A DAY
     Route: 062
     Dates: start: 20190903
  4. TAGRISSO [Suspect]
     Active Substance: OSIMERTINIB
     Indication: NON-SMALL CELL LUNG CANCER
     Route: 048
     Dates: start: 20200729
  5. ZOLPIDEM TARTRATE. [Concomitant]
     Active Substance: ZOLPIDEM TARTRATE
     Indication: INSOMNIA
     Dosage: 1.0DF AS REQUIRED
     Route: 048
     Dates: start: 20190731
  6. TAGRISSO [Suspect]
     Active Substance: OSIMERTINIB
     Indication: NON-SMALL CELL LUNG CANCER
     Route: 048
     Dates: start: 20191021
  7. REBAMIPIDE [Concomitant]
     Active Substance: REBAMIPIDE
     Indication: GASTRITIS PROPHYLAXIS
     Dosage: AFTER EVERY MEAL
     Route: 048
     Dates: start: 20190723

REACTIONS (5)
  - Aspartate aminotransferase increased [Recovered/Resolved]
  - Gamma-glutamyltransferase increased [Recovered/Resolved]
  - Alanine aminotransferase increased [Recovered/Resolved]
  - Herpes zoster [Recovering/Resolving]
  - Blood alkaline phosphatase increased [Recovered/Resolved]

NARRATIVE: CASE EVENT DATE: 20190909
